FAERS Safety Report 13059183 (Version 2)
Quarter: 2017Q1

REPORT INFORMATION
  Report Type: Report from Study
  Country: US (occurrence: US)
  Receive Date: 20161223
  Receipt Date: 20170213
  Transmission Date: 20170428
  Serious: Yes (Other)
  Sender: FDA-Public Use
  Company Number: US-AEGERION PHARMACEUTICAL INC.-AEGR002876

PATIENT
  Age: 45 Year
  Sex: Female
  Weight: 81.63 kg

DRUGS (2)
  1. JUXTAPID [Suspect]
     Active Substance: LOMITAPIDE MESYLATE
     Dosage: 10 MG, QD
     Route: 048
  2. JUXTAPID [Suspect]
     Active Substance: LOMITAPIDE MESYLATE
     Indication: TYPE IIA HYPERLIPIDAEMIA
     Dosage: 5 MG, QD
     Route: 048
     Dates: start: 20140329

REACTIONS (13)
  - Oral herpes [Unknown]
  - Hypoglycaemia [Unknown]
  - Blood potassium decreased [Recovering/Resolving]
  - Malaise [Unknown]
  - Urinary tract infection [Unknown]
  - Arrhythmia [Unknown]
  - Genitourinary symptom [Unknown]
  - Uterine disorder [Unknown]
  - Weight increased [Unknown]
  - Obesity [Unknown]
  - Fatigue [Unknown]
  - Pain in extremity [Unknown]
  - Liver function test increased [Unknown]

NARRATIVE: CASE EVENT DATE: 20140721
